FAERS Safety Report 11441968 (Version 3)
Quarter: 2015Q4

REPORT INFORMATION
  Report Type: Report from Study
  Country: SG (occurrence: SG)
  Receive Date: 20150901
  Receipt Date: 20151001
  Transmission Date: 20160304
  Serious: Yes (Hospitalization)
  Sender: FDA-Public Use
  Company Number: PHHO2014SG003177

PATIENT
  Age: 70 Year
  Sex: Female
  Weight: 45.7 kg

DRUGS (36)
  1. NEUROBION [Concomitant]
     Active Substance: CYANOCOBALAMIN\PYRIDOXINE\THIAMINE
     Indication: SUPPLEMENTATION THERAPY
     Dosage: 1 DF, QD (VIT B1 100 MG,B6 20 MG AND B12 200 MCG)
     Route: 048
     Dates: start: 20120802, end: 20150507
  2. VILDAGLIPTIN [Concomitant]
     Active Substance: VILDAGLIPTIN
     Dosage: 50 MG, QD
     Route: 048
  3. LDK378 [Suspect]
     Active Substance: CERITINIB
     Dosage: 300 MG, QD
     Route: 048
     Dates: end: 20150504
  4. AMLODIPINE [Concomitant]
     Active Substance: AMLODIPINE BESYLATE
     Indication: HYPERTENSION
     Dosage: 5 MG, QD
     Route: 048
     Dates: start: 19880101
  5. ACTRAPID BEEF [Concomitant]
     Dosage: 4 U, ONCE/SINGLE
     Route: 058
     Dates: start: 20150506, end: 20150506
  6. GABAPENTIN. [Concomitant]
     Active Substance: GABAPENTIN
     Indication: PRURITUS
     Dosage: 400 MG, QD
     Route: 048
     Dates: start: 20141231, end: 20150507
  7. CALCIUM CARBONATE. [Suspect]
     Active Substance: CALCIUM CARBONATE
     Indication: HYPOCALCAEMIA
     Dosage: 2.5 MG, BID
     Route: 048
     Dates: start: 20131105, end: 20140227
  8. ACTRAPID BEEF [Concomitant]
     Indication: DIABETES MELLITUS
     Dosage: 0.6 U, UNK (DEPENDING ON HYPO COUNT)
     Route: 058
     Dates: start: 20140301
  9. DOXEPIN [Concomitant]
     Active Substance: DOXEPIN
     Indication: PRURITUS
     Dosage: 10 MG, QD
     Route: 048
     Dates: start: 20141231, end: 20150506
  10. NOVOMIX 30 [Concomitant]
     Active Substance: INSULIN ASPART
     Dosage: 42 U, BID
     Route: 058
  11. LDK378 [Suspect]
     Active Substance: CERITINIB
     Dosage: 300 MG, QD
     Route: 048
     Dates: start: 20150505
  12. SIMVASTATIN. [Concomitant]
     Active Substance: SIMVASTATIN
     Indication: HYPERTENSION
     Dosage: 20 MG, QD
     Route: 048
     Dates: start: 19880101, end: 20140410
  13. GLIPIZIDE. [Concomitant]
     Active Substance: GLIPIZIDE
     Indication: DIABETES MELLITUS
     Dosage: 10 MG, BID
     Route: 048
     Dates: start: 19900101, end: 20140227
  14. GLIPIZIDE. [Concomitant]
     Active Substance: GLIPIZIDE
     Dosage: 5 MG, BID
     Route: 048
     Dates: start: 20140303
  15. ONDANSETRON [Concomitant]
     Active Substance: ONDANSETRON
     Indication: VOMITING
     Dosage: 8 MG, BID
     Route: 048
     Dates: start: 20140301
  16. VILDAGLIPTIN [Concomitant]
     Active Substance: VILDAGLIPTIN
     Dosage: 50 MG, QD
     Route: 048
     Dates: start: 20140304, end: 20150507
  17. NOVOMIX 30 [Concomitant]
     Active Substance: INSULIN ASPART
     Dosage: 42 U, ONCE/SINGLE
     Route: 058
     Dates: start: 20150506, end: 20150506
  18. LDK378 [Suspect]
     Active Substance: CERITINIB
     Indication: NON-SMALL CELL LUNG CANCER
     Dosage: 750 MG, QD
     Route: 048
     Dates: start: 20140225, end: 20140227
  19. EUTHYROX [Concomitant]
     Active Substance: LEVOTHYROXINE SODIUM
     Indication: GOITRE
     Dosage: 100 UG, QD
     Route: 048
     Dates: start: 20131105, end: 20150507
  20. VILDAGLIPTIN [Concomitant]
     Active Substance: VILDAGLIPTIN
     Indication: DIABETES MELLITUS
     Dosage: 50 MG, QD
     Route: 048
     Dates: start: 19900101, end: 20140227
  21. LACTULOSE. [Concomitant]
     Active Substance: LACTULOSE
     Indication: CONSTIPATION
     Dosage: 20 ML, QD (ONCE)
     Route: 065
     Dates: start: 20140301
  22. CALCIUM CARBONATE. [Suspect]
     Active Substance: CALCIUM CARBONATE
     Dosage: 1.25 MG, QD
     Route: 048
     Dates: start: 20140304
  23. CALCITRIOL. [Concomitant]
     Active Substance: CALCITRIOL
     Indication: HYPOCALCAEMIA
     Dosage: 0.5 UG, QD
     Route: 048
     Dates: start: 20131105, end: 20140227
  24. FENOFIBRATE. [Concomitant]
     Active Substance: FENOFIBRATE
     Indication: HYPERLIPIDAEMIA
     Dosage: 145 MG, QD
     Route: 048
     Dates: start: 20150326, end: 20150507
  25. NOVOMIX 30 [Concomitant]
     Active Substance: INSULIN ASPART
     Indication: DIABETES MELLITUS
     Dosage: 24 U, UNK
     Route: 058
     Dates: start: 20150326
  26. CALCITRIOL. [Concomitant]
     Active Substance: CALCITRIOL
     Dosage: 0.25 UG, QD
     Route: 048
     Dates: start: 20140303
  27. GLIPIZIDE. [Concomitant]
     Active Substance: GLIPIZIDE
     Dosage: 15 MG, BID
     Route: 048
  28. NOVOMIX 30 [Concomitant]
     Active Substance: INSULIN ASPART
     Dosage: 48 U, ONCE/SINGLE
     Route: 058
     Dates: start: 20150507, end: 20150507
  29. NOVOMIX [Concomitant]
     Active Substance: INSULIN ASPART
     Indication: DIABETES MELLITUS
     Dosage: 30 U - PRE BREAKFAST
     Route: 065
  30. ATENOLOL. [Concomitant]
     Active Substance: ATENOLOL
     Indication: HYPERLIPIDAEMIA
     Dosage: 100 MG, QD
     Route: 048
     Dates: start: 20030101
  31. OMEPRAZOLE. [Concomitant]
     Active Substance: OMEPRAZOLE
     Indication: GASTRITIS
     Dosage: 40 MG, QD
     Route: 048
     Dates: start: 19940101, end: 20150507
  32. ISOPHANE INSULIN [Concomitant]
     Active Substance: INSULIN NOS
     Indication: DIABETES MELLITUS
     Dosage: 6 U, BID
     Route: 058
     Dates: start: 20140227
  33. BISACODYL. [Concomitant]
     Active Substance: BISACODYL
     Indication: CONSTIPATION
     Dosage: 10 MG, QD (ONCE)
     Route: 054
     Dates: start: 20140301
  34. FEXOFENADINE HCL [Concomitant]
     Active Substance: FEXOFENADINE HYDROCHLORIDE
     Indication: PRURITUS
     Dosage: 180 MG, QD
     Route: 048
     Dates: start: 20140528, end: 20150507
  35. FEXOFENADINE HCL [Concomitant]
     Active Substance: FEXOFENADINE HYDROCHLORIDE
     Indication: RASH MACULO-PAPULAR
  36. NOVOMIX [Concomitant]
     Active Substance: INSULIN ASPART
     Dosage: 36 U - PRE DINNER
     Route: 065

REACTIONS (3)
  - Hypercalcaemia [Recovered/Resolved]
  - Diabetes mellitus [Recovering/Resolving]
  - Blood creatinine increased [Recovering/Resolving]

NARRATIVE: CASE EVENT DATE: 20140227
